FAERS Safety Report 4607577-1 (Version None)
Quarter: 2005Q1

REPORT INFORMATION
  Report Type: 
  Country: None (occurrence: None)
  Receive Date: 20050309
  Receipt Date: 20050224
  Transmission Date: 20050727
  Serious: No
  Sender: FDA-Public Use
  Company Number: 2005PK00363

PATIENT
  Age: 11 Year
  Sex: Female
  Weight: 35.2 kg

DRUGS (4)
  1. MERONEM [Suspect]
     Indication: FEBRILE NEUTROPENIA
     Dosage: 20 MG/KG TID IV
     Route: 042
     Dates: start: 20050210, end: 20050101
  2. TARGOCID [Concomitant]
  3. FUNGITZONE [Concomitant]
  4. AMBIOSONE [Concomitant]

REACTIONS (4)
  - CHILLS [None]
  - COUGH [None]
  - EXANTHEM [None]
  - FLUSHING [None]
